FAERS Safety Report 4269912-6 (Version None)
Quarter: 2004Q1

REPORT INFORMATION
  Report Type: 
  Country: None (occurrence: None)
  Receive Date: 20040112
  Receipt Date: 20040112
  Transmission Date: 20041129
  Serious: Yes (Hospitalization)
  Sender: FDA-Public Use
  Company Number: None

PATIENT
  Age: 55 Year
  Sex: Male

DRUGS (7)
  1. GLYBURIDE [Suspect]
     Indication: DIABETES MELLITUS NON-INSULIN-DEPENDENT
     Dosage: 2.5 MG BID
     Dates: start: 20030418
  2. LORTAB [Concomitant]
  3. DIAZEPAM [Concomitant]
  4. TRAZODONE HCL [Concomitant]
  5. ISOSORBIDE [Concomitant]
  6. PLAVIX [Concomitant]
  7. METOPROLOL [Concomitant]

REACTIONS (2)
  - HYPOGLYCAEMIA [None]
  - MENTAL STATUS CHANGES [None]
